FAERS Safety Report 24406872 (Version 1)
Quarter: 2024Q4

REPORT INFORMATION
  Report Type: Spontaneous
  Country: US (occurrence: None)
  Receive Date: 20241006
  Receipt Date: 20241006
  Transmission Date: 20250115
  Serious: Yes (unspecified)
  Sender: Public
  Company Number: None

PATIENT
  Age: 25 Year
  Sex: Female
  Weight: 72 kg

DRUGS (1)
  1. QBREXZA [Suspect]
     Active Substance: GLYCOPYRRONIUM TOSYLATE
     Indication: Hyperhidrosis
     Dates: start: 20241004, end: 20241005

REACTIONS (9)
  - Dry mouth [None]
  - Urinary retention [None]
  - Feeding disorder [None]
  - Abdominal distension [None]
  - Peripheral swelling [None]
  - Lip dry [None]
  - Pain in extremity [None]
  - Headache [None]
  - Choking [None]

NARRATIVE: CASE EVENT DATE: 20241005
